FAERS Safety Report 5325786-3 (Version None)
Quarter: 2007Q2

REPORT INFORMATION
  Report Type: 
  Country: None (occurrence: None)
  Receive Date: 20070510
  Receipt Date: 20070426
  Transmission Date: 20071010
  Serious: Yes (Other)
  Sender: FDA-Public Use
  Company Number: 02100-JPN-06-0622

PATIENT
  Age: 77 Year
  Sex: Male

DRUGS (1)
  1. CILOSTAZOL [Suspect]
     Indication: LACUNAR INFARCTION
     Dosage: 50 MG/100 MG, ORAL
     Route: 048
     Dates: start: 20060101, end: 20061201

REACTIONS (2)
  - BLOOD PRESSURE SYSTOLIC INCREASED [None]
  - THALAMUS HAEMORRHAGE [None]
